FAERS Safety Report 18414227 (Version 1)
Quarter: 2020Q4

REPORT INFORMATION
  Report Type: Spontaneous
  Country: CN (occurrence: CN)
  Receive Date: 20201022
  Receipt Date: 20201022
  Transmission Date: 20210114
  Serious: Yes (Other)
  Sender: FDA-Public Use
  Company Number: CN-ACCORD-205672

PATIENT
  Age: 35 Year
  Sex: Male

DRUGS (5)
  1. NEDAPLATIN [Concomitant]
     Active Substance: NEDAPLATIN
     Indication: BLADDER CANCER STAGE III
  2. FLUOROURACIL. [Suspect]
     Active Substance: FLUOROURACIL
     Indication: BLADDER CANCER STAGE III
     Dosage: BOLUS, EVERY 14 DAYS
     Dates: start: 2017
  3. FOLINIC ACID [Suspect]
     Active Substance: LEUCOVORIN
     Indication: BLADDER CANCER STAGE III
     Dosage: EVERY 14 DAYS
     Dates: start: 2017
  4. IRINOTECAN [Suspect]
     Active Substance: IRINOTECAN
     Indication: BLADDER CANCER STAGE III
     Dosage: EVERY 14 DAYS
     Dates: start: 2017
  5. OXALIPLATIN. [Suspect]
     Active Substance: OXALIPLATIN
     Indication: BLADDER CANCER STAGE III
     Dosage: EVERY 14 DAYS
     Dates: start: 2017

REACTIONS (4)
  - Nausea [Unknown]
  - Vomiting [Unknown]
  - Drug intolerance [Unknown]
  - Neutropenia [Unknown]
